FAERS Safety Report 6972870-4 (Version None)
Quarter: 2010Q3

REPORT INFORMATION
  Report Type: 
  Country: None (occurrence: None)
  Receive Date: 20100909
  Receipt Date: 20100827
  Transmission Date: 20110219
  Serious: Yes (Other)
  Sender: FDA-Public Use
  Company Number: US-CELGENEUS-163-21880-10072946

PATIENT
  Sex: Male

DRUGS (1)
  1. REVLIMID [Suspect]
     Indication: MULTIPLE MYELOMA
     Route: 048
     Dates: start: 20100601

REACTIONS (4)
  - ARTHROPOD BITE [None]
  - NERVOUS SYSTEM DISORDER [None]
  - PLEURAL EFFUSION [None]
  - PNEUMONIA [None]
